FAERS Safety Report 15668868 (Version 3)
Quarter: 2018Q4

REPORT INFORMATION
  Report Type: Report from Study
  Country: None (occurrence: BE)
  Receive Date: 20181129
  Receipt Date: 20181218
  Transmission Date: 20190205
  Serious: Yes (Hospitalization, Other)
  Sender: FDA-Public Use
  Company Number: BE-ABBVIE-18S-013-2568609-00

PATIENT
  Sex: Male

DRUGS (3)
  1. DUODOPA [Suspect]
     Active Substance: CARBIDOPA\LEVODOPA
     Indication: PARKINSON^S DISEASE
     Dosage: MD=5ML, CD=2.5ML/HR DURING 16HRS, ED=1.5ML
     Route: 050
     Dates: start: 20140825, end: 20140828
  2. DUODOPA [Suspect]
     Active Substance: CARBIDOPA\LEVODOPA
     Dosage: DOSES CONTINUOUSLY MONITORED AND ADAPTED
     Route: 050
     Dates: start: 20140828, end: 20180917
  3. DUODOPA [Suspect]
     Active Substance: CARBIDOPA\LEVODOPA
     Dosage: MD=1.3ML, CD=3.6ML/HR DURING 16HRS  ,ED=1.5ML,ND=2.8ML/HR DURING 8HRS
     Route: 050
     Dates: start: 20180917, end: 20181211

REACTIONS (9)
  - Device issue [Unknown]
  - Urinary tract infection [Unknown]
  - Hip fracture [Unknown]
  - Fall [Recovered/Resolved]
  - Device dislocation [Unknown]
  - Urosepsis [Recovering/Resolving]
  - Disorientation [Recovering/Resolving]
  - Device connection issue [Unknown]
  - Hallucination [Unknown]
